FAERS Safety Report 5845254-X (Version None)
Quarter: 2008Q3

REPORT INFORMATION
  Report Type: 
  Country: None (occurrence: None)
  Receive Date: 20080814
  Receipt Date: 20080805
  Transmission Date: 20090109
  Serious: Yes (Death, Other)
  Sender: FDA-Public Use
  Company Number: IT-CELGENEUS-083-20785-08080295

PATIENT
  Age: 59 Year
  Sex: Male

DRUGS (4)
  1. THALOMID [Suspect]
     Indication: RENAL CELL CARCINOMA
     Route: 048
  2. ZOLEDRONIC ACID [Concomitant]
     Indication: PROPHYLAXIS
     Route: 058
  3. CALCIUM [Concomitant]
     Indication: MEDICAL DIET
     Route: 048
  4. VITAMIN D3 [Concomitant]
     Indication: MEDICAL DIET
     Route: 048

REACTIONS (2)
  - CARDIAC ARREST [None]
  - PERICARDIAL EFFUSION MALIGNANT [None]
